FAERS Safety Report 9230093 (Version 1)
Quarter: 2013Q2

REPORT INFORMATION
  Report Type: Spontaneous
  Country: US (occurrence: US)
  Receive Date: 20130415
  Receipt Date: 20130415
  Transmission Date: 20140414
  Serious: Yes (Hospitalization)
  Sender: FDA-Public Use
  Company Number: US-BAYER-2013-045137

PATIENT
  Age: 38 Year
  Sex: Female
  Weight: 160.54 kg

DRUGS (19)
  1. YASMIN [Suspect]
     Indication: OVARIAN CYST
  2. OCELLA [Suspect]
  3. ROBAXIN [Concomitant]
     Indication: MUSCLE RELAXANT THERAPY
     Dosage: 500 MG, TID
  4. ULTRAM [Concomitant]
     Indication: PAIN
     Dosage: 50 MG, Q 6 HOURS PRN
  5. KRISTALOSE [Concomitant]
     Dosage: 20 MG, UNK
  6. ANUCORT-HC [Concomitant]
     Dosage: 25 MG, BID
     Route: 054
  7. ATENOLOL [Concomitant]
     Dosage: 50 MG, QD
  8. STOOL SOFTENER [Concomitant]
     Indication: CONSTIPATION
     Dosage: 100 MG, TID
  9. IBUPROFEN [Concomitant]
  10. TRIAMTERENE AND HYDROCHLOROTHIAZIDE [Concomitant]
     Dosage: 37.5/25 MG, ONCE DAILY
     Route: 048
  11. METFORMIN W/ROSIGLITAZONE [Concomitant]
     Dosage: 500 MG, BID
     Route: 048
  12. PREVACID [Concomitant]
     Indication: GASTROOESOPHAGEAL REFLUX DISEASE
     Dosage: 30 MG, DAILY
     Route: 048
  13. AVANDIA [Concomitant]
     Dosage: 1 TWICE,DAILY
     Route: 048
  14. METFORMIN [Concomitant]
     Indication: OVARIAN CYST
  15. LO/OVRAL [Concomitant]
  16. CLARITIN [Concomitant]
  17. DYAZIDE [Concomitant]
  18. COLACE [Concomitant]
  19. NASAREL [Concomitant]

REACTIONS (1)
  - Pulmonary embolism [Recovering/Resolving]
